FAERS Safety Report 4433369-2 (Version None)
Quarter: 2004Q3

REPORT INFORMATION
  Report Type: 
  Country: None (occurrence: None)
  Receive Date: 20040824
  Receipt Date: 20040812
  Transmission Date: 20050211
  Serious: Yes (Other)
  Sender: FDA-Public Use
  Company Number: 2004228470GB

PATIENT
  Age: 55 Year
  Sex: Male

DRUGS (1)
  1. CAVERJECT [Suspect]
     Indication: ERECTILE DYSFUNCTION
     Dosage: 20 UG, INTRACISTERNAL
     Route: 020
     Dates: start: 19960101

REACTIONS (2)
  - CONDITION AGGRAVATED [None]
  - RETINOPATHY [None]
